FAERS Safety Report 23890640 (Version 1)
Quarter: 2024Q2

REPORT INFORMATION
  Report Type: Spontaneous
  Country: NL (occurrence: NL)
  Receive Date: 20240523
  Receipt Date: 20240523
  Transmission Date: 20240716
  Serious: Yes (Hospitalization)
  Sender: FDA-Public Use
  Company Number: NL-WOODWARD-2024-NL-000018

PATIENT
  Age: 74 Year
  Sex: Male
  Weight: 65 kg

DRUGS (1)
  1. DUTASTERIDE\TAMSULOSIN HYDROCHLORIDE [Suspect]
     Active Substance: DUTASTERIDE\TAMSULOSIN HYDROCHLORIDE
     Indication: Prostatic disorder
     Dosage: UNK UNK, QD; 1X/D
     Dates: start: 20230818, end: 20240417

REACTIONS (3)
  - Plantar fasciitis [Recovered/Resolved]
  - Skin discolouration [Recovered/Resolved]
  - Oedema peripheral [Recovered/Resolved]
